FAERS Safety Report 19461284 (Version 1)
Quarter: 2021Q2

REPORT INFORMATION
  Report Type: Spontaneous
  Country: CN (occurrence: CN)
  Receive Date: 20210625
  Receipt Date: 20210625
  Transmission Date: 20210717
  Serious: Yes (Other)
  Sender: FDA-Public Use
  Company Number: CN-PFIZER INC-2021716864

PATIENT
  Age: 43 Year
  Sex: Female
  Weight: 64.5 kg

DRUGS (3)
  1. METHOTREXATE. [Suspect]
     Active Substance: METHOTREXATE
     Dosage: 342 MG, 1X/DAY
     Route: 041
     Dates: start: 20210524, end: 20210524
  2. METHOTREXATE. [Suspect]
     Active Substance: METHOTREXATE
     Indication: CHORIOCARCINOMA
     Dosage: 171 MG, 1X/DAY
     Route: 040
     Dates: start: 20210524, end: 20210524
  3. ETOPOSIDE. [Suspect]
     Active Substance: ETOPOSIDE
     Indication: CHORIOCARCINOMA
     Dosage: 171 MG, 1X/DAY
     Route: 041
     Dates: start: 20210524, end: 20210525

REACTIONS (2)
  - Off label use [Unknown]
  - Myelosuppression [Unknown]

NARRATIVE: CASE EVENT DATE: 20210524
